FAERS Safety Report 7405034-0 (Version None)
Quarter: 2011Q2

REPORT INFORMATION
  Report Type: 
  Country: None (occurrence: None)
  Receive Date: 20110411
  Receipt Date: 20110330
  Transmission Date: 20111010
  Serious: Yes (Hospitalization)
  Sender: FDA-Public Use
  Company Number: US-ENDO PHARMACEUTICALS INC.-VALS20110039

PATIENT
  Sex: Female

DRUGS (1)
  1. VALSTAR PRESERVATIVE FREE [Suspect]
     Indication: CARCINOMA IN SITU
     Route: 043

REACTIONS (2)
  - ABDOMINAL PAIN [None]
  - BURNING SENSATION [None]
